FAERS Safety Report 5095329-0 (Version None)
Quarter: 2006Q3

REPORT INFORMATION
  Report Type: 
  Country: None (occurrence: None)
  Receive Date: 20060901
  Receipt Date: 20060831
  Transmission Date: 20061208
  Serious: Yes (Other)
  Sender: FDA-Public Use
  Company Number: US-GLAXOSMITHKLINE-A0618762A

PATIENT
  Age: 44 Year
  Sex: Female

DRUGS (3)
  1. BACTROBAN [Suspect]
     Indication: SKIN INFECTION
     Dosage: 2PCT TWICE PER DAY
     Route: 061
     Dates: start: 20060818, end: 20060824
  2. DAILY VITAMIN [Concomitant]
  3. CIPRO [Concomitant]

REACTIONS (7)
  - CRYING [None]
  - FEELING HOT [None]
  - HAEMORRHAGE [None]
  - NAUSEA [None]
  - RASH [None]
  - SWELLING [None]
  - WHEEZING [None]
